FAERS Safety Report 11699464 (Version 1)
Quarter: 2015Q4

REPORT INFORMATION
  Report Type: Spontaneous
  Country: AR (occurrence: AR)
  Receive Date: 20151105
  Receipt Date: 20151105
  Transmission Date: 20160304
  Serious: Yes (Other)
  Sender: FDA-Public Use
  Company Number: AR-AMGEN-ARGSP2015115816

PATIENT
  Age: 14 Year
  Sex: Female

DRUGS (3)
  1. ENBREL [Suspect]
     Active Substance: ETANERCEPT
     Indication: JUVENILE IDIOPATHIC ARTHRITIS
     Dosage: UNK
     Route: 065
  2. ENBREL [Suspect]
     Active Substance: ETANERCEPT
     Dosage: UNK
     Route: 065
  3. METHOTREXATO                       /00113801/ [Concomitant]
     Dosage: UNK

REACTIONS (11)
  - Skin lesion [Recovering/Resolving]
  - Vulval disorder [Recovering/Resolving]
  - Blister [Recovering/Resolving]
  - Oral candidiasis [Recovering/Resolving]
  - Herpes virus infection [Recovered/Resolved]
  - Stevens-Johnson syndrome [Recovering/Resolving]
  - Oral mucosal blistering [Recovering/Resolving]
  - Genital blister [Recovering/Resolving]
  - Coxsackie viral infection [Recovering/Resolving]
  - Off label use [Unknown]
  - Oral disorder [Recovering/Resolving]

NARRATIVE: CASE EVENT DATE: 201510
